FAERS Safety Report 12111152 (Version 1)
Quarter: 2016Q1

REPORT INFORMATION
  Report Type: Spontaneous
  Country: US (occurrence: US)
  Receive Date: 20160224
  Receipt Date: 20160224
  Transmission Date: 20160526
  Serious: Yes (Other)
  Sender: FDA-Public Use
  Company Number: US-JNJFOC-20160210861

PATIENT

DRUGS (2)
  1. IBRUTINIB [Suspect]
     Active Substance: IBRUTINIB
     Indication: CHRONIC LYMPHOCYTIC LEUKAEMIA
     Route: 048
  2. IBRUTINIB [Suspect]
     Active Substance: IBRUTINIB
     Indication: CHRONIC LYMPHOCYTIC LEUKAEMIA
     Route: 048

REACTIONS (10)
  - Off label use [Unknown]
  - Cytopenia [Unknown]
  - Pneumonitis [Unknown]
  - Incorrect dose administered [Unknown]
  - Atrial fibrillation [Unknown]
  - Infection [Unknown]
  - Haemorrhage [Unknown]
  - Chronic lymphocytic leukaemia [Unknown]
  - Toxicity to various agents [Unknown]
  - Richter^s syndrome [Unknown]
